FAERS Safety Report 19680424 (Version 2)
Quarter: 2021Q3

REPORT INFORMATION
  Report Type: Spontaneous
  Country: US (occurrence: US)
  Receive Date: 20210810
  Receipt Date: 20210916
  Transmission Date: 20211014
  Serious: Yes (Other)
  Sender: FDA-Public Use
  Company Number: US-ASTRAZENECA-2021A662463

PATIENT
  Age: 57 Year
  Sex: Female
  Weight: 54.4 kg

DRUGS (5)
  1. LASIX [Concomitant]
     Active Substance: FUROSEMIDE
     Indication: PAIN
     Dosage: 325 MG
  2. VERAPAMIL [Concomitant]
     Active Substance: VERAPAMIL HYDROCHLORIDE
  3. LOSARTAN. [Concomitant]
     Active Substance: LOSARTAN
     Indication: BLOOD PRESSURE ABNORMAL
     Dosage: 50 MG
  4. IMFINZI [Suspect]
     Active Substance: DURVALUMAB
     Indication: NON-SMALL CELL LUNG CANCER
     Dosage: EVERY TWO WEEKS
     Route: 042
     Dates: start: 202009
  5. ASPIRIN. [Concomitant]
     Active Substance: ASPIRIN
     Indication: PAIN
     Dosage: 325 MG

REACTIONS (38)
  - Teeth brittle [Unknown]
  - Urinary incontinence [Unknown]
  - Upper limb fracture [Unknown]
  - Poor peripheral circulation [Unknown]
  - Exostosis [Unknown]
  - Blood pressure fluctuation [Unknown]
  - Breast haemorrhage [Unknown]
  - Dysphonia [Unknown]
  - Melaena [Unknown]
  - Cardiac disorder [Unknown]
  - Patient-device incompatibility [Unknown]
  - Dry mouth [Unknown]
  - Loss of consciousness [Unknown]
  - Alopecia [Unknown]
  - Madarosis [Unknown]
  - Dizziness [Unknown]
  - Blister [Not Recovered/Not Resolved]
  - Paraesthesia [Unknown]
  - Fall [Unknown]
  - Haematemesis [Unknown]
  - Renal disorder [Unknown]
  - Neck pain [Unknown]
  - Ear haemorrhage [Unknown]
  - Dyspnoea [Unknown]
  - Hypertrichosis [Unknown]
  - Depression [Unknown]
  - Anal incontinence [Unknown]
  - Stomach mass [Unknown]
  - Visual impairment [Unknown]
  - Pyrexia [Unknown]
  - Musculoskeletal pain [Unknown]
  - Weight decreased [Unknown]
  - Skin burning sensation [Unknown]
  - Dysphagia [Unknown]
  - Disorientation [Unknown]
  - Chronic obstructive pulmonary disease [Unknown]
  - Peripheral swelling [Unknown]
  - Pain [Unknown]

NARRATIVE: CASE EVENT DATE: 2020
